FAERS Safety Report 9531522 (Version 1)
Quarter: 2013Q3

REPORT INFORMATION
  Report Type: Spontaneous
  Country: FR (occurrence: FR)
  Receive Date: 20130918
  Receipt Date: 20130918
  Transmission Date: 20140515
  Serious: Yes (Death)
  Sender: FDA-Public Use
  Company Number: FR-JNJFOC-20130909130

PATIENT
  Age: 82 Year
  Sex: Male

DRUGS (5)
  1. XARELTO [Suspect]
     Indication: THROMBOSIS PROPHYLAXIS
     Route: 048
     Dates: start: 201306
  2. XARELTO [Suspect]
     Indication: HIP ARTHROPLASTY
     Route: 048
     Dates: start: 201306
  3. NOOTROPYL [Concomitant]
     Route: 065
  4. DAFALGAN [Concomitant]
     Route: 065
  5. MONURIL [Concomitant]
     Route: 065

REACTIONS (2)
  - Cerebral haemorrhage [Fatal]
  - Coma [Fatal]
